FAERS Safety Report 5428942-9 (Version None)
Quarter: 2007Q3

REPORT INFORMATION
  Report Type: 
  Country: None (occurrence: None)
  Receive Date: 20070827
  Receipt Date: 20070817
  Transmission Date: 20080115
  Serious: Yes (Other)
  Sender: FDA-Public Use
  Company Number: 8013431

PATIENT
  Sex: Male
  Weight: 12.3 kg

DRUGS (5)
  1. KEPPRA [Suspect]
     Dosage: VIA
     Dates: end: 20050712
  2. LEXAPRO [Suspect]
     Dosage: VIA
     Dates: end: 20050712
  3. SEROQUEL [Suspect]
     Dosage: VIA
     Dates: end: 20050712
  4. ASPIRIN [Suspect]
     Dosage: VIA
     Dates: end: 20050712
  5. PRENATAL VITAMINS [Suspect]
     Dosage: VIA
     Dates: end: 20050712

REACTIONS (6)
  - CAESAREAN SECTION [None]
  - DEVELOPMENTAL COORDINATION DISORDER [None]
  - DEVELOPMENTAL DELAY [None]
  - DRUG EXPOSURE DURING PREGNANCY [None]
  - PREMATURE BABY [None]
  - SPEECH DISORDER DEVELOPMENTAL [None]
